FAERS Safety Report 17364018 (Version 1)
Quarter: 2020Q1

REPORT INFORMATION
  Report Type: Other
  Country: EG (occurrence: EG)
  Receive Date: 20200204
  Receipt Date: 20200204
  Transmission Date: 20200409
  Serious: Yes (Hospitalization, Other)
  Sender: FDA-Public Use
  Company Number: EG-DEXPHARM-20200096

PATIENT
  Age: 27 Year
  Sex: Male

DRUGS (5)
  1. OMEPRAZOLE. [Interacting]
     Active Substance: OMEPRAZOLE
     Indication: PRODUCT USED FOR UNKNOWN INDICATION
  2. FUROSEMIDE. [Concomitant]
     Active Substance: FUROSEMIDE
     Indication: CARDIAC FAILURE
  3. WARFARIN [Suspect]
     Active Substance: WARFARIN
     Indication: MITRAL VALVE REPLACEMENT
  4. ASPIRIN. [Interacting]
     Active Substance: ASPIRIN
     Indication: MITRAL VALVE REPLACEMENT
  5. DIGOXIN. [Concomitant]
     Active Substance: DIGOXIN
     Indication: CARDIAC FAILURE

REACTIONS (1)
  - Drug interaction [Unknown]
